FAERS Safety Report 7995636-5 (Version None)
Quarter: 2011Q4

REPORT INFORMATION
  Report Type: 
  Country: None (occurrence: None)
  Receive Date: 20111217
  Receipt Date: 20111217
  Transmission Date: 20120403
  Serious: No
  Sender: FDA-Public Use
  Company Number: None

PATIENT
  Age: 61 Year
  Sex: Female
  Weight: 75.3 kg

DRUGS (6)
  1. DEXAMETHASONE [Concomitant]
  2. VELCADE [Concomitant]
  3. DILAUDID [Concomitant]
  4. FENTANYL [Concomitant]
  5. BENDAMUSTINE 108 MG IVPB [Suspect]
     Indication: CHEMOTHERAPY
     Dosage: 108 MG 571 MG/HR IV
     Route: 042
     Dates: start: 20110927
  6. ZOFRAN [Concomitant]

REACTIONS (2)
  - SWELLING [None]
  - INJECTION SITE EXTRAVASATION [None]
